FAERS Safety Report 16693377 (Version 2)
Quarter: 2019Q3

REPORT INFORMATION
  Report Type: Spontaneous
  Country: GB (occurrence: GB)
  Receive Date: 20190812
  Receipt Date: 20190822
  Transmission Date: 20191004
  Serious: Yes (Other)
  Sender: FDA-Public Use
  Company Number: PHHY2019GB182909

PATIENT

DRUGS (7)
  1. PREDNISOLONE. [Suspect]
     Active Substance: PREDNISOLONE
     Indication: IMMUNOSUPPRESSANT DRUG THERAPY
  2. MYCOPHENOLATE MOFETIL. [Suspect]
     Active Substance: MYCOPHENOLATE MOFETIL
     Indication: IMMUNOSUPPRESSANT DRUG THERAPY
  3. ENVARSUS XR [Suspect]
     Active Substance: TACROLIMUS
     Indication: IMMUNOSUPPRESSANT DRUG THERAPY
     Dosage: 2 MG
     Route: 065
  4. ADOPORT [Concomitant]
     Active Substance: TACROLIMUS
     Indication: RENAL TRANSPLANT
     Dosage: UNK
     Route: 065
  5. MYCOPHENOLATE MOFETIL. [Suspect]
     Active Substance: MYCOPHENOLATE MOFETIL
     Indication: RENAL TRANSPLANT
     Dosage: UNK
     Route: 065
  6. PREDNISOLONE. [Suspect]
     Active Substance: PREDNISOLONE
     Indication: RENAL TRANSPLANT
     Dosage: UNK
     Route: 065
  7. ENVARSUS XR [Suspect]
     Active Substance: TACROLIMUS
     Indication: RENAL TRANSPLANT
     Dosage: 3 MG
     Route: 065

REACTIONS (1)
  - Kaposi^s sarcoma [Recovered/Resolved]
